FAERS Safety Report 5023332-5 (Version None)
Quarter: 2006Q2

REPORT INFORMATION
  Report Type: 
  Country: None (occurrence: None)
  Receive Date: 20060605
  Receipt Date: 20060524
  Transmission Date: 20061013
  Serious: Yes (Death, Hospitalization, Other)
  Sender: FDA-Public Use
  Company Number: 2006JP001286

PATIENT
  Age: 57 Year
  Sex: Male
  Weight: 50 kg

DRUGS (10)
  1. PROGRAF [Suspect]
     Indication: DERMATOMYOSITIS
     Dosage: 3 MG, UID/QD, ORAL
     Route: 048
     Dates: start: 20050628
  2. CYCLOSPORINE [Suspect]
     Dosage: SEE IMAGE
     Route: 048
     Dates: start: 20050524, end: 20050526
  3. CYCLOSPORINE [Suspect]
     Dosage: SEE IMAGE
     Route: 048
     Dates: start: 20050527, end: 20050627
  4. PREDNISOLONE [Suspect]
     Dosage: 20 MG, TID, ORAL
     Route: 048
     Dates: start: 20050524
  5. SULFAMETHOXAZOLE + TRIMETHOPRIM [Concomitant]
  6. CALCIUM LACTATE [Concomitant]
  7. ALFAROL (ALFACALCIDOL) [Concomitant]
  8. ZOLPIDEM TARTRATE [Concomitant]
  9. FUNGIZONE [Concomitant]
  10. ZANTAC [Concomitant]

REACTIONS (9)
  - ALANINE AMINOTRANSFERASE INCREASED [None]
  - ASPARTATE AMINOTRANSFERASE INCREASED [None]
  - BLOOD LACTATE DEHYDROGENASE INCREASED [None]
  - CYTOMEGALOVIRUS INFECTION [None]
  - DERMATOMYOSITIS [None]
  - HEPATIC FUNCTION ABNORMAL [None]
  - INTERSTITIAL LUNG DISEASE [None]
  - LYMPHOCYTE COUNT DECREASED [None]
  - RESPIRATORY FAILURE [None]
